FAERS Safety Report 11238167 (Version 1)
Quarter: 2015Q3

REPORT INFORMATION
  Report Type: Spontaneous
  Country: BR (occurrence: BR)
  Receive Date: 20150703
  Receipt Date: 20150703
  Transmission Date: 20151125
  Serious: Yes (Other)
  Sender: FDA-Public Use
  Company Number: BR-GLAXOSMITHKLINE INC.-BR2014GSK026774

PATIENT
  Sex: Female
  Weight: 90 kg

DRUGS (4)
  1. MONTELUKAST SODIUM. [Concomitant]
     Active Substance: MONTELUKAST SODIUM
     Indication: ASTHMA
     Dosage: 1 UNK, QD
     Route: 048
  2. SERETIDE [Suspect]
     Active Substance: FLUTICASONE FUROATE\SALMETEROL XINAFOATE
     Indication: ASTHMA
     Dosage: 2 PUFF(S), BID
     Route: 055
  3. BECLOMETASONE DIPROPIONATE + FORMOTEROL FUMARATE [Concomitant]
     Indication: ASTHMA
     Dosage: UNK
  4. SERETIDE [Suspect]
     Active Substance: FLUTICASONE FUROATE\SALMETEROL XINAFOATE
     Dosage: UNK

REACTIONS (6)
  - Wheezing [Unknown]
  - Pneumonia [Not Recovered/Not Resolved]
  - Drug ineffective [Recovered/Resolved]
  - Asthmatic crisis [Not Recovered/Not Resolved]
  - Adverse event [Recovered/Resolved]
  - Product quality issue [Unknown]
